FAERS Safety Report 24873677 (Version 2)
Quarter: 2025Q1

REPORT INFORMATION
  Report Type: Report from Study
  Country: US (occurrence: US)
  Receive Date: 20250122
  Receipt Date: 20250122
  Transmission Date: 20250409
  Serious: Yes (Hospitalization, Other)
  Sender: JOHNSON AND JOHNSON
  Company Number: US-JNJFOC-20241135222

PATIENT
  Age: 47 Year
  Sex: Female

DRUGS (1)
  1. SPRAVATO [Suspect]
     Active Substance: ESKETAMINE
     Indication: Depression
     Route: 045
     Dates: start: 20241028, end: 20241028

REACTIONS (6)
  - Suicidal ideation [Unknown]
  - Gastritis [Unknown]
  - Brain fog [Unknown]
  - Arthritis [Unknown]
  - Fatigue [Unknown]
  - Sedation [Unknown]

NARRATIVE: CASE EVENT DATE: 20241028
